FAERS Safety Report 9147865 (Version 1)
Quarter: 2013Q1

REPORT INFORMATION
  Report Type: Spontaneous
  Country: US (occurrence: US)
  Receive Date: 20130307
  Receipt Date: 20130307
  Transmission Date: 20140127
  Serious: No
  Sender: FDA-Public Use
  Company Number: US-TEVA-390275USA

PATIENT
  Sex: Female
  Weight: 70.37 kg

DRUGS (3)
  1. COPAXONE [Suspect]
     Indication: MULTIPLE SCLEROSIS
     Dosage: 20 MILLIGRAM DAILY;
     Route: 058
     Dates: start: 20000411
  2. PROTONIX [Concomitant]
     Dosage: 20 MILLIGRAM DAILY;
     Route: 048
  3. LEVOTHROID [Concomitant]
     Dosage: 68.5 MICROGRAM DAILY;
     Route: 048

REACTIONS (1)
  - Hypotension [Not Recovered/Not Resolved]
